FAERS Safety Report 5022155-0 (Version None)
Quarter: 2006Q2

REPORT INFORMATION
  Report Type: 
  Country: None (occurrence: None)
  Receive Date: 20060609
  Receipt Date: 20060518
  Transmission Date: 20061013
  Serious: Yes (Hospitalization)
  Sender: FDA-Public Use
  Company Number: CA-AMGEN-US180186

PATIENT
  Sex: Female

DRUGS (1)
  1. NEUPOGEN [Suspect]
     Indication: AGRANULOCYTOSIS

REACTIONS (4)
  - CARDIAC FAILURE CONGESTIVE [None]
  - GASTROENTERITIS NORWALK VIRUS [None]
  - PULMONARY OEDEMA [None]
  - SEPSIS [None]
